FAERS Safety Report 11908762 (Version 1)
Quarter: 2016Q1

REPORT INFORMATION
  Report Type: Spontaneous
  Country: US (occurrence: US)
  Receive Date: 20160111
  Receipt Date: 20160111
  Transmission Date: 20160526
  Serious: No
  Sender: FDA-Public Use
  Company Number: US-009507513-2006SP007602

PATIENT
  Age: 28 Year
  Sex: Female

DRUGS (4)
  1. MK-4031 [Suspect]
     Active Substance: PEGINTERFERON ALFA-2B
     Indication: HEPATITIS C
     Dosage: 150 ?G, QW
     Dates: start: 200406, end: 20041230
  2. ZYPREXA [Concomitant]
     Active Substance: OLANZAPINE
     Indication: DEPRESSION
     Dosage: 10 MG, UNK
     Dates: start: 2004, end: 20050304
  3. REBETOL [Suspect]
     Active Substance: RIBAVIRIN
     Indication: HEPATITIS C
     Dosage: 1000 MG, QD
     Dates: start: 200406, end: 20041230
  4. PROZAC [Concomitant]
     Active Substance: FLUOXETINE HYDROCHLORIDE
     Indication: DEPRESSION
     Dosage: 25 MG, UNK
     Dates: start: 2004, end: 20050304

REACTIONS (2)
  - Exposure during pregnancy [Unknown]
  - No adverse event [Unknown]
